FAERS Safety Report 18116766 (Version 1)
Quarter: 2020Q3

REPORT INFORMATION
  Report Type: Spontaneous
  Country: US (occurrence: US)
  Receive Date: 20200806
  Receipt Date: 20200806
  Transmission Date: 20201103
  Serious: Yes (Other)
  Sender: FDA-Public Use
  Company Number: US-STRIDES ARCOLAB LIMITED-2020SP005101

PATIENT
  Age: 57 Year
  Sex: Male

DRUGS (12)
  1. HYDROXYCARBAMIDE [Concomitant]
     Active Substance: HYDROXYUREA
     Dosage: DOSE REDUCED.
     Route: 065
     Dates: start: 2019
  2. HYDROXYZINE [Suspect]
     Active Substance: HYDROXYZINE HYDROCHLORIDE
     Indication: HYPEREOSINOPHILIC SYNDROME
     Dosage: UNK
     Route: 065
  3. HYDROXYZINE [Suspect]
     Active Substance: HYDROXYZINE HYDROCHLORIDE
     Dosage: DOSE REDUCED
     Route: 065
  4. MEPOLIZUMAB [Concomitant]
     Active Substance: MEPOLIZUMAB
     Indication: HYPEREOSINOPHILIC SYNDROME
     Dosage: RECEIVED NINE INJECTIONS OF EACH 300 MILLIGRAM, PER MONTH INJECTION
     Route: 058
     Dates: start: 2018
  5. HYDROXYCARBAMIDE [Concomitant]
     Active Substance: HYDROXYUREA
     Indication: PRURITUS
     Dosage: UNK
     Route: 065
     Dates: start: 2019
  6. GABAPENTIN. [Suspect]
     Active Substance: GABAPENTIN
     Indication: HYPEREOSINOPHILIC SYNDROME
     Dosage: UNK
     Route: 065
  7. PREDNISOLONE. [Suspect]
     Active Substance: PREDNISOLONE
     Dosage: 10 MILLIGRAM, DAILY
     Route: 065
     Dates: start: 2018
  8. GABAPENTIN. [Suspect]
     Active Substance: GABAPENTIN
     Dosage: DOSE REDUCED
     Route: 065
  9. METFORMIN [Concomitant]
     Active Substance: METFORMIN HYDROCHLORIDE
     Indication: DIABETES MELLITUS
     Dosage: UNK
     Route: 065
  10. PREDNISOLONE. [Suspect]
     Active Substance: PREDNISOLONE
     Indication: HYPEREOSINOPHILIC SYNDROME
     Dosage: UNK
     Route: 065
  11. DUPILUMAB [Concomitant]
     Active Substance: DUPILUMAB
     Indication: PRURITUS
     Dosage: UNK
     Route: 065
  12. PEGYLATED INTERFERON ALFA?2A [Concomitant]
     Active Substance: PEGINTERFERON ALFA-2A
     Indication: HYPEREOSINOPHILIC SYNDROME
     Dosage: 180 MICROGRAM PER WEEK
     Route: 065
     Dates: start: 2018

REACTIONS (3)
  - Therapy partial responder [Unknown]
  - Hyperglycaemia [Unknown]
  - Off label use [Unknown]
